FAERS Safety Report 9977582 (Version 2)
Quarter: 2014Q1

REPORT INFORMATION
  Report Type: Report from Study
  Country: US (occurrence: US)
  Receive Date: 20140306
  Receipt Date: 20140306
  Transmission Date: 20141002
  Serious: No
  Sender: FDA-Public Use
  Company Number: US-ABBVIE-13P-163-1130812-00

PATIENT
  Age: 47 Year
  Sex: Male

DRUGS (15)
  1. HUMIRA [Suspect]
     Indication: COLITIS ULCERATIVE
     Dates: start: 201304, end: 201304
  2. HUMIRA [Suspect]
  3. HUMIRA [Suspect]
  4. HUMIRA [Suspect]
     Dosage: STARTESD OVER WITH LOADING DOSE
     Dates: start: 20131101, end: 20131101
  5. GENERIC LIPITOR [Concomitant]
     Indication: BLOOD CHOLESTEROL INCREASED
     Dosage: 10MG DAILY
  6. TRAZODONE [Concomitant]
     Indication: INSOMNIA
     Dosage: AT BEDTIME
  7. GENERIC AMBIEN [Concomitant]
     Indication: INSOMNIA
     Dosage: AS NEEDED AT BEDTIME
  8. GENERIC FLONASE SPRAY [Concomitant]
     Indication: SEASONAL ALLERGY
     Dosage: 1 SRAY EACH NOSTRIL
  9. MVI [Concomitant]
     Indication: PRODUCT USED FOR UNKNOWN INDICATION
  10. ASACOL [Concomitant]
     Indication: PRODUCT USED FOR UNKNOWN INDICATION
     Dates: end: 20130610
  11. UCERIS [Concomitant]
     Indication: PRODUCT USED FOR UNKNOWN INDICATION
     Dates: end: 20130610
  12. CYCLOBENZAPRINE [Concomitant]
     Indication: MUSCLE RELAXANT THERAPY
  13. ATACIDS [Concomitant]
     Indication: PRODUCT USED FOR UNKNOWN INDICATION
  14. OXYCODONE [Concomitant]
     Indication: BACK PAIN
     Dosage: 5/325; 1/4 TAB
  15. PRILOSEC [Concomitant]
     Indication: ABDOMINAL PAIN UPPER
     Dosage: DAILY

REACTIONS (3)
  - Visual impairment [Not Recovered/Not Resolved]
  - Myalgia [Not Recovered/Not Resolved]
  - Rectal haemorrhage [Not Recovered/Not Resolved]
